FAERS Safety Report 5632094-X (Version None)
Quarter: 2008Q1

REPORT INFORMATION
  Report Type: 
  Country: None (occurrence: None)
  Receive Date: 20080220
  Receipt Date: 20080211
  Transmission Date: 20080703
  Serious: Yes (Hospitalization)
  Sender: FDA-Public Use
  Company Number: B0507333A

PATIENT
  Age: 40 Year
  Sex: Male

DRUGS (6)
  1. AUGMENTIN '125' [Suspect]
     Route: 048
     Dates: start: 20071117, end: 20071119
  2. DAFALGAN [Suspect]
     Route: 048
     Dates: start: 20071117, end: 20071122
  3. SKENAN [Suspect]
     Indication: PAIN
     Route: 048
     Dates: start: 20071116, end: 20071119
  4. GRANOCYTE [Suspect]
     Indication: NEUTROPENIA
     Route: 058
     Dates: start: 20071119, end: 20071122
  5. ALIMTA [Concomitant]
     Route: 065
     Dates: start: 20071113
  6. ROCEPHIN [Concomitant]
     Route: 065
     Dates: start: 20071119, end: 20071120

REACTIONS (2)
  - CHOLESTASIS [None]
  - HEPATOCELLULAR INJURY [None]
